FAERS Safety Report 13012875 (Version 1)
Quarter: 2016Q4

REPORT INFORMATION
  Report Type: Spontaneous
  Country: US (occurrence: US)
  Receive Date: 20161208
  Receipt Date: 20161208
  Transmission Date: 20170207
  Serious: No
  Sender: FDA-Public Use
  Company Number: None

PATIENT
  Age: 62 Year
  Sex: Male
  Weight: 86.4 kg

DRUGS (8)
  1. ADVAIR HFA [Concomitant]
     Active Substance: FLUTICASONE PROPIONATE\SALMETEROL XINAFOATE
  2. INCRUSE ELLIPTA [Suspect]
     Active Substance: UMECLIDINIUM BROMIDE
     Indication: CHRONIC OBSTRUCTIVE PULMONARY DISEASE
     Dosage: ?          QUANTITY:30 PUFF(S);?
     Route: 055
     Dates: start: 20161116, end: 20161120
  3. INCRUSE ELLIPTA [Suspect]
     Active Substance: UMECLIDINIUM BROMIDE
     Indication: ASTHMA
     Dosage: ?          QUANTITY:30 PUFF(S);?
     Route: 055
     Dates: start: 20161116, end: 20161120
  4. LISINOPRIL. [Concomitant]
     Active Substance: LISINOPRIL
  5. NEBULIZER [Concomitant]
     Active Substance: DEVICE
  6. ONE A DAY 50PLUS FOR MEN [Concomitant]
  7. ALBUTEROL. [Concomitant]
     Active Substance: ALBUTEROL
  8. SYMBICORT [Concomitant]
     Active Substance: BUDESONIDE\FORMOTEROL FUMARATE DIHYDRATE

REACTIONS (5)
  - Heart rate irregular [None]
  - Oropharyngeal pain [None]
  - Cough [None]
  - Rhinorrhoea [None]
  - Vision blurred [None]

NARRATIVE: CASE EVENT DATE: 20161120
